FAERS Safety Report 7592921-6 (Version None)
Quarter: 2011Q2

REPORT INFORMATION
  Report Type: 
  Country: None (occurrence: None)
  Receive Date: 20110628
  Receipt Date: 20110614
  Transmission Date: 20111010
  Serious: Yes (Life-Threatening)
  Sender: FDA-Public Use
  Company Number: 2011P1007325

PATIENT
  Age: 40 Year
  Sex: Female

DRUGS (4)
  1. PROPOFOL [Suspect]
     Indication: ANAESTHESIA
     Dosage: ;IV
     Route: 042
     Dates: start: 20110601
  2. FENTANYL [Suspect]
     Indication: ANAESTHESIA
     Dosage: ;IV
     Route: 042
     Dates: start: 20110601
  3. ATRACURIUM BESYLATE [Suspect]
     Indication: ANAESTHESIA
     Dosage: ;IV
     Route: 042
     Dates: start: 20110601
  4. ONDANSETRON [Suspect]
     Indication: ANAESTHESIA
     Dosage: ;IV
     Route: 042
     Dates: start: 20110601

REACTIONS (3)
  - HYPOTENSION [None]
  - RASH [None]
  - BRONCHOSPASM [None]
